FAERS Safety Report 7763547-6 (Version None)
Quarter: 2011Q3

REPORT INFORMATION
  Report Type: 
  Country: None (occurrence: None)
  Receive Date: 20110920
  Receipt Date: 20110907
  Transmission Date: 20111222
  Serious: Yes (Other)
  Sender: FDA-Public Use
  Company Number: FI-GENENTECH-324386

PATIENT
  Sex: Female

DRUGS (5)
  1. XOLAIR [Suspect]
     Dosage: UNK
     Route: 030
     Dates: start: 20110809
  2. XOLAIR [Suspect]
     Dosage: 150 MG, UNKNOWN
     Route: 030
     Dates: start: 20110712
  3. BUVENTOL EASYHALER [Concomitant]
     Indication: PRODUCT USED FOR UNKNOWN INDICATION
     Dosage: 0.1 MG, UNK
  4. XOLAIR [Suspect]
     Indication: ASTHMA
     Dosage: 150 MG, UNKNOWN
     Route: 030
     Dates: start: 20110613
  5. ALVESCO [Concomitant]
     Indication: PRODUCT USED FOR UNKNOWN INDICATION
     Dosage: 160 A?G, UNK

REACTIONS (4)
  - DRUG INEFFECTIVE [None]
  - OEDEMA PERIPHERAL [None]
  - SWELLING FACE [None]
  - ERYTHEMA [None]
